FAERS Safety Report 6474677-3 (Version None)
Quarter: 2009Q4

REPORT INFORMATION
  Report Type: 
  Country: None (occurrence: None)
  Receive Date: 20091204
  Receipt Date: 20091127
  Transmission Date: 20100525
  Serious: Yes (Hospitalization)
  Sender: FDA-Public Use
  Company Number: FR-PFIZER INC-2009303272

PATIENT
  Age: 45 Year
  Sex: Male

DRUGS (2)
  1. SOLU-MEDROL [Suspect]
     Dosage: 1 G, UNK
     Route: 042
     Dates: start: 20070101, end: 20091117
  2. ENDOXAN [Concomitant]
     Dosage: UNK
     Dates: start: 20070101

REACTIONS (3)
  - EYELID OEDEMA [None]
  - PRURITUS [None]
  - RHINORRHOEA [None]
